FAERS Safety Report 24262929 (Version 1)
Quarter: 2024Q3

REPORT INFORMATION
  Report Type: Spontaneous
  Country: CN (occurrence: CN)
  Receive Date: 20240829
  Receipt Date: 20240829
  Transmission Date: 20241016
  Serious: Yes (Other)
  Sender: JIANGSU HENGRUI MEDICINE
  Company Number: CN-Jiangsu Hengrui Medicine Co., Ltd.-2160968

PATIENT
  Age: 62 Year
  Sex: Male

DRUGS (4)
  1. OXALIPLATIN [Suspect]
     Active Substance: OXALIPLATIN
     Indication: Colon cancer
  2. CAPECITABINE [Suspect]
     Active Substance: CAPECITABINE
  3. FLUOROURACIL [Suspect]
     Active Substance: FLUOROURACIL
  4. LEUCOVORIN CALCIUM [Suspect]
     Active Substance: LEUCOVORIN CALCIUM

REACTIONS (3)
  - Drug-induced liver injury [Unknown]
  - Rectal tenesmus [Recovering/Resolving]
  - Diarrhoea [Recovered/Resolved]
